FAERS Safety Report 18105969 (Version 2)
Quarter: 2021Q2

REPORT INFORMATION
  Report Type: Report from Study
  Country: PE (occurrence: PE)
  Receive Date: 20200803
  Receipt Date: 20210429
  Transmission Date: 20210717
  Serious: Yes (Other)
  Sender: FDA-Public Use
  Company Number: PE-TAKEDA-2020TUS033139

PATIENT
  Age: 46 Year
  Sex: Female
  Weight: 57.5 kg

DRUGS (1)
  1. VEDOLIZUMAB [Suspect]
     Active Substance: VEDOLIZUMAB
     Indication: CROHN^S DISEASE
     Dosage: 300 MILLIGRAM, Q4WEEKS
     Route: 042
     Dates: start: 20180913

REACTIONS (3)
  - Off label use [Unknown]
  - Constipation [Unknown]
  - COVID-19 [Unknown]

NARRATIVE: CASE EVENT DATE: 20180913
